FAERS Safety Report 8547953-8 (Version None)
Quarter: 2012Q3

REPORT INFORMATION
  Report Type: 
  Country: None (occurrence: None)
  Receive Date: 20120729
  Receipt Date: 20120717
  Transmission Date: 20120928
  Serious: Yes (Hospitalization)
  Sender: FDA-Public Use
  Company Number: GB-TEVA-348743ISR

PATIENT
  Age: 73 Year
  Sex: Female

DRUGS (6)
  1. DIHYDROCODEINE BITARTRATE INJ [Concomitant]
     Dosage: AS NECESSARY
     Route: 048
  2. PREDNISOLONE [Concomitant]
     Route: 048
  3. NITROFURANTOIN [Suspect]
     Indication: URINARY TRACT INFECTION
     Route: 048
     Dates: start: 20120522, end: 20120525
  4. AMITRIPTYLINE HYDROCHLORIDE [Concomitant]
     Dosage: AT NIGHT
     Route: 048
     Dates: start: 19970101
  5. PAZOPANIB [Suspect]
     Indication: RENAL CELL CARCINOMA
     Route: 048
     Dates: start: 20120301, end: 20120526
  6. FLUOXETINE HCL [Concomitant]
     Dosage: IN THE MORNING
     Route: 048
     Dates: start: 20120522

REACTIONS (4)
  - BACK PAIN [None]
  - LETHARGY [None]
  - LIVER FUNCTION TEST ABNORMAL [None]
  - JAUNDICE [None]
